FAERS Safety Report 10251990 (Version 1)
Quarter: 2014Q2

REPORT INFORMATION
  Report Type: Spontaneous
  Country: FR (occurrence: FR)
  Receive Date: 20140623
  Receipt Date: 20140623
  Transmission Date: 20141212
  Serious: Yes (Hospitalization)
  Sender: FDA-Public Use
  Company Number: FR-ROCHE-1422798

PATIENT
  Age: 59 Year
  Sex: Female

DRUGS (12)
  1. CELLCEPT [Suspect]
     Indication: LIVER TRANSPLANT
     Route: 065
     Dates: start: 2001
  2. CELLCEPT [Suspect]
     Route: 065
     Dates: start: 201302
  3. NEORAL [Suspect]
     Indication: LIVER TRANSPLANT
     Dosage: PROGRESSIVELY DECREASED
     Route: 065
     Dates: start: 2001
  4. NEORAL [Suspect]
     Dosage: PROGRESSIVELY DECREASED
     Route: 065
     Dates: start: 20140522
  5. STILNOX [Concomitant]
     Route: 065
  6. DELURSAN [Concomitant]
     Route: 065
     Dates: start: 2001
  7. ATARAX [Concomitant]
     Route: 065
  8. AVLOCARDYL [Concomitant]
     Route: 065
     Dates: start: 2013
  9. KARDEGIC [Concomitant]
     Route: 065
     Dates: start: 201212
  10. INEXIUM [Concomitant]
     Dosage: SINCE SEVERAL YEARS
     Route: 065
  11. ACLASTA [Concomitant]
     Route: 065
     Dates: start: 201401
  12. CORTISONE [Concomitant]
     Route: 065
     Dates: start: 2012, end: 20130221

REACTIONS (2)
  - Myositis [Unknown]
  - Myalgia [Unknown]
